FAERS Safety Report 8889794 (Version 1)
Quarter: 2012Q4

REPORT INFORMATION
  Report Type: 
  Country: US (occurrence: US)
  Receive Date: 20121107
  Receipt Date: 20121107
  Transmission Date: 20130627
  Serious: Yes (Other)
  Sender: FDA-Public Use
  Company Number: US-SANOFI-AVENTIS-2012SA075679

PATIENT
  Sex: Female

DRUGS (2)
  1. ALLEGRA [Suspect]
     Indication: ALLERGY
     Route: 048
  2. ALLEGRA [Suspect]
     Indication: ALLERGY
     Route: 048

REACTIONS (4)
  - Glaucoma [Not Recovered/Not Resolved]
  - Nasal dryness [Unknown]
  - Wrong technique in drug usage process [Unknown]
  - Therapeutic response increased [Unknown]
